FAERS Safety Report 7417324-6 (Version None)
Quarter: 2011Q2

REPORT INFORMATION
  Report Type: 
  Country: None (occurrence: None)
  Receive Date: 20110415
  Receipt Date: 20110412
  Transmission Date: 20111010
  Serious: No
  Sender: FDA-Public Use
  Company Number: US-TEVA-274175USA

PATIENT
  Sex: Female
  Weight: 160.72 kg

DRUGS (3)
  1. DEPO-PROVERA [Concomitant]
     Indication: CONTRACEPTION
     Dates: start: 20110329
  2. MULTI-VITAMIN [Concomitant]
     Indication: VITAMIN SUPPLEMENTATION
  3. PLAN B ONE-STEP [Suspect]
     Indication: POST COITAL CONTRACEPTION
     Dosage: 1.5 MILLIGRAM;
     Route: 048
     Dates: start: 20110330, end: 20110330

REACTIONS (4)
  - MENSTRUATION IRREGULAR [None]
  - PYREXIA [None]
  - PELVIC PAIN [None]
  - NAUSEA [None]
